FAERS Safety Report 14007076 (Version 1)
Quarter: 2017Q3

REPORT INFORMATION
  Report Type: Spontaneous
  Country: US (occurrence: US)
  Receive Date: 20170924
  Receipt Date: 20170924
  Transmission Date: 20171128
  Serious: Yes (Hospitalization, Other)
  Sender: FDA-Public Use
  Company Number: None

PATIENT
  Age: 37 Year
  Sex: Female
  Weight: 90 kg

DRUGS (11)
  1. KEFLEX [Concomitant]
     Active Substance: CEPHALEXIN
  2. MUPUROCIN CREAM [Concomitant]
  3. FISH OIL [Concomitant]
     Active Substance: FISH OIL
  4. VITAMIN D3 [Concomitant]
     Active Substance: CHOLECALCIFEROL
  5. PREDNISONE. [Concomitant]
     Active Substance: PREDNISONE
  6. BENADRYL [Concomitant]
     Active Substance: DIPHENHYDRAMINE HYDROCHLORIDE
  7. TRANSDERM SCOP [Suspect]
     Active Substance: SCOPOLAMINE
     Indication: PROPHYLAXIS OF NAUSEA AND VOMITING
     Dates: start: 20170920, end: 20170920
  8. LISINOPRIL. [Concomitant]
     Active Substance: LISINOPRIL
  9. MOTRIN [Concomitant]
     Active Substance: IBUPROFEN
  10. MULTI VITAMIN [Concomitant]
     Active Substance: VITAMINS
  11. SUPER B COMPLEX [Concomitant]
     Active Substance: CYANOCOBALAMIN\DEXPANTHENOL\NIACINAMIDE\PYRIDOXINE HYDROCHLORIDE\RIBOFLAVIN 5^-PHOSPHATE SODIUM\THIAMINE HYDROCHLORIDE\VITAMIN B COMPLEX

REACTIONS (7)
  - Application site inflammation [None]
  - Burning sensation [None]
  - Purulent discharge [None]
  - Application site burn [None]
  - Rash pruritic [None]
  - Wound infection bacterial [None]
  - Urticaria [None]

NARRATIVE: CASE EVENT DATE: 20170920
